FAERS Safety Report 10051269 (Version 1)
Quarter: 2014Q2

REPORT INFORMATION
  Report Type: Spontaneous
  Country: US (occurrence: US)
  Receive Date: 20140401
  Receipt Date: 20140401
  Transmission Date: 20141212
  Serious: Yes (Other)
  Sender: FDA-Public Use
  Company Number: US-ABBVIE-14P-163-1217717-00

PATIENT
  Sex: Female
  Weight: 118.04 kg

DRUGS (6)
  1. SYNTHROID [Suspect]
     Indication: AUTOIMMUNE THYROIDITIS
     Dates: start: 1994
  2. SYNTHROID 88 MCG [Suspect]
     Indication: AUTOIMMUNE THYROIDITIS
  3. SYNTHROID 175 MCG [Suspect]
     Indication: AUTOIMMUNE THYROIDITIS
  4. SYNTHROID 200 MCG [Suspect]
     Indication: AUTOIMMUNE THYROIDITIS
  5. SYNTHROID 150 MCG [Suspect]
     Indication: HYPOTHYROIDISM
  6. SYNTHROID 25 MCG [Suspect]
     Indication: HYPOTHYROIDISM

REACTIONS (13)
  - Goitre [Recovered/Resolved]
  - Dysphagia [Recovered/Resolved]
  - Odynophagia [Recovered/Resolved]
  - Papillary thyroid cancer [Recovered/Resolved]
  - Blood thyroid stimulating hormone increased [Recovered/Resolved]
  - Arrhythmia [Not Recovered/Not Resolved]
  - Ventricular extrasystoles [Not Recovered/Not Resolved]
  - Supraventricular extrasystoles [Not Recovered/Not Resolved]
  - Ventricular extrasystoles [Not Recovered/Not Resolved]
  - Blood thyroid stimulating hormone abnormal [Not Recovered/Not Resolved]
  - Mood altered [Not Recovered/Not Resolved]
  - Fatigue [Recovered/Resolved]
  - Weight increased [Recovered/Resolved]
